FAERS Safety Report 16733098 (Version 2)
Quarter: 2019Q3

REPORT INFORMATION
  Report Type: Other
  Country: GB (occurrence: GB)
  Receive Date: 20190823
  Receipt Date: 20190918
  Transmission Date: 20191005
  Serious: Yes (Other)
  Sender: FDA-Public Use
  Company Number: GB-GLENMARK PHARMACEUTICALS-2019GMK042809

PATIENT

DRUGS (9)
  1. DIAZEPAM. [Concomitant]
     Active Substance: DIAZEPAM
     Indication: PRODUCT USED FOR UNKNOWN INDICATION
     Dosage: 5 MG, UNK (1 TABLET 3 TIMES DAILY FOR 4 DAYS THEN REDUCE BY 1 TABLET EVERY SECOND DAY)
     Route: 065
     Dates: start: 20190605
  2. CHLORAMPHENICOL [Concomitant]
     Active Substance: CHLORAMPHENICOL
     Indication: PRODUCT USED FOR UNKNOWN INDICATION
     Dosage: UNK, QD (1-2 DROPS FOUR TIMES PER DAY)
     Route: 065
     Dates: start: 20190430
  3. CETRABEN                           /01007601/ [Concomitant]
     Indication: PRODUCT USED FOR UNKNOWN INDICATION
     Dosage: 2 DF, OD (APPLY)
     Route: 065
     Dates: start: 20190416
  4. LAMOTRIGINE. [Suspect]
     Active Substance: LAMOTRIGINE
     Indication: MYOCLONUS
     Dosage: OD (ONE A DAY) FOR 2 WEEKS, INCREASING BY 25MG EVERY 2 WEEKS UNTIL ON 100MG A DAY
     Route: 048
     Dates: start: 20190430
  5. SIMVASTATIN. [Concomitant]
     Active Substance: SIMVASTATIN
     Indication: PRODUCT USED FOR UNKNOWN INDICATION
     Dosage: 40 MG, OD (AT NIGHT)
     Route: 065
     Dates: start: 20190530
  6. CASSIA SENNA [Concomitant]
     Active Substance: HERBALS\SENNOSIDES
     Indication: PRODUCT USED FOR UNKNOWN INDICATION
     Dosage: 7.5 MG, OD (AT NIGHT)
     Route: 065
     Dates: start: 20190530
  7. QUETIAPINE. [Concomitant]
     Active Substance: QUETIAPINE
     Indication: PRODUCT USED FOR UNKNOWN INDICATION
     Dosage: 75 MG, OD (AT NIGHT)
     Route: 065
     Dates: start: 20190530
  8. DOXYCYCLINE. [Concomitant]
     Active Substance: DOXYCYCLINE
     Indication: PRODUCT USED FOR UNKNOWN INDICATION
     Dosage: 100 MG, UNK (2 IMMEDIATELY THEN ONE DAILY)
     Route: 065
     Dates: start: 20190430
  9. LEVOTHYROXINE SODIUM. [Concomitant]
     Active Substance: LEVOTHYROXINE SODIUM
     Indication: PRODUCT USED FOR UNKNOWN INDICATION
     Dosage: 75 MCG, OD (50MCG AND 25MCG - IN THE MORNING)
     Route: 065
     Dates: start: 20190530

REACTIONS (2)
  - Myoclonus [Unknown]
  - Condition aggravated [Unknown]

NARRATIVE: CASE EVENT DATE: 20190603
